FAERS Safety Report 5343558-0 (Version None)
Quarter: 2007Q2

REPORT INFORMATION
  Report Type: 
  Country: None (occurrence: None)
  Receive Date: 20070416
  Receipt Date: 20070125
  Transmission Date: 20071010
  Serious: No
  Sender: FDA-Public Use
  Company Number: 2007SP000298

PATIENT
  Age: 64 Year
  Sex: Female
  Weight: 48.9885 kg

DRUGS (9)
  1. LUNESTA [Suspect]
     Indication: INSOMNIA
     Dosage: 3 MG; HS; ORAL
     Route: 048
     Dates: start: 20070121, end: 20070124
  2. PANTOPRAZOLE SODIUM [Concomitant]
  3. LISINOPRIL [Concomitant]
  4. LOVASTATIN [Concomitant]
  5. FLUOXETINE [Concomitant]
  6. TOPROL-XL [Concomitant]
  7. ASPIRIN [Concomitant]
  8. MULTIVITAMIN [Concomitant]
  9. TEMAZEPAM [Concomitant]

REACTIONS (4)
  - DRY MOUTH [None]
  - HEADACHE [None]
  - PARADOXICAL DRUG REACTION [None]
  - PHARYNGOLARYNGEAL PAIN [None]
